FAERS Safety Report 6786520-3 (Version None)
Quarter: 2010Q2

REPORT INFORMATION
  Report Type: 
  Country: None (occurrence: None)
  Receive Date: 20100623
  Receipt Date: 20100615
  Transmission Date: 20101027
  Serious: Yes (Hospitalization)
  Sender: FDA-Public Use
  Company Number: Z0004184A

PATIENT
  Age: 57 Year
  Sex: Male
  Weight: 70 kg

DRUGS (8)
  1. GW685698 + GW642444 INHALATION POWDER [Suspect]
     Indication: CHRONIC OBSTRUCTIVE PULMONARY DISEASE
     Route: 055
     Dates: start: 20100505
  2. ADVAIR DISKUS 100/50 [Suspect]
     Indication: CHRONIC OBSTRUCTIVE PULMONARY DISEASE
     Route: 055
     Dates: start: 20100406, end: 20100505
  3. LOVENOX [Concomitant]
     Dosage: 40MG PER DAY
     Route: 058
     Dates: start: 20100510, end: 20100514
  4. MUCINEX [Concomitant]
     Indication: MUCOUS MEMBRANE DISORDER
     Dosage: 1200MG TWICE PER DAY
     Route: 048
     Dates: start: 20100510, end: 20100514
  5. DUONEB [Concomitant]
     Indication: CHRONIC OBSTRUCTIVE PULMONARY DISEASE
     Dosage: 3ML FOUR TIMES PER DAY
     Route: 055
     Dates: start: 20100510, end: 20100511
  6. MORPHINE SULFATE [Concomitant]
     Indication: PLEURITIC PAIN
     Dosage: 2MG SINGLE DOSE
     Route: 042
     Dates: start: 20100511, end: 20100511
  7. HYDROCODONE [Concomitant]
     Indication: PLEURITIC PAIN
     Dosage: 5MG AS REQUIRED
     Route: 048
     Dates: start: 20100511, end: 20100513
  8. TORADOL [Concomitant]
     Indication: PLEURITIC PAIN
     Dosage: 15MG AS REQUIRED
     Route: 042
     Dates: start: 20100511, end: 20100514

REACTIONS (1)
  - PNEUMONIA [None]
